FAERS Safety Report 25096555 (Version 2)
Quarter: 2025Q1

REPORT INFORMATION
  Report Type: Report from Study
  Country: CA (occurrence: CA)
  Receive Date: 20250319
  Receipt Date: 20250324
  Transmission Date: 20250409
  Serious: Yes (Other)
  Sender: ABBVIE
  Company Number: CA-ABBVIE-6180621

PATIENT
  Age: 59 Year
  Sex: Female

DRUGS (1)
  1. RINVOQ [Suspect]
     Active Substance: UPADACITINIB
     Indication: Psoriatic arthropathy
     Dosage: FORM STRENGTH: 15 MG
     Route: 048
     Dates: start: 20240407, end: 20250314

REACTIONS (12)
  - Localised infection [Unknown]
  - Fall [Unknown]
  - Limb injury [Unknown]
  - Sacroiliitis [Unknown]
  - Facet joint block [Unknown]
  - Back pain [Unknown]
  - Pain in extremity [Unknown]
  - Peripheral swelling [Unknown]
  - Musculoskeletal disorder [Unknown]
  - Pain [Unknown]
  - Psoriasis [Unknown]
  - Buttock injury [Unknown]

NARRATIVE: CASE EVENT DATE: 20241130
